FAERS Safety Report 9611980 (Version 1)
Quarter: 2013Q4

REPORT INFORMATION
  Report Type: Report from Study
  Country: LB (occurrence: LB)
  Receive Date: 20131010
  Receipt Date: 20131010
  Transmission Date: 20140711
  Serious: Yes (Death)
  Sender: FDA-Public Use
  Company Number: LB-ROCHE-1286917

PATIENT
  Sex: Male
  Weight: 81 kg

DRUGS (3)
  1. BEVACIZUMAB [Suspect]
     Indication: COLON CANCER
     Route: 041
     Dates: start: 20120809, end: 20130125
  2. OXALIPLATIN [Concomitant]
     Indication: COLON CANCER
     Route: 041
     Dates: start: 20120809, end: 20130125
  3. ZOMETA [Concomitant]
     Indication: COLON CANCER
     Route: 041
     Dates: start: 20120809, end: 20130125

REACTIONS (1)
  - Death [Fatal]
